FAERS Safety Report 15768040 (Version 4)
Quarter: 2019Q3

REPORT INFORMATION
  Report Type: Report from Study
  Country: US (occurrence: US)
  Receive Date: 20181227
  Receipt Date: 20190930
  Transmission Date: 20191004
  Serious: Yes (Other)
  Sender: FDA-Public Use
  Company Number: US-TESAROUBC-2018-TSO2592-US

PATIENT
  Age: 73 Year
  Sex: Male
  Weight: 87.5 kg

DRUGS (4)
  1. DOSTARLIMAB [Suspect]
     Active Substance: DOSTARLIMAB
     Dosage: 500 MG, UNK
     Dates: start: 20171106, end: 20171106
  2. DOSTARLIMAB [Suspect]
     Active Substance: DOSTARLIMAB
     Dosage: 1000 MG, UNK
     Dates: start: 20180531, end: 20180531
  3. NIRAPARIB [Suspect]
     Active Substance: NIRAPARIB
     Dosage: 200 MG, UNK
     Dates: start: 20171106, end: 20171106
  4. NIRAPARIB [Suspect]
     Active Substance: NIRAPARIB
     Dosage: 200MG UNK
     Dates: start: 20180629, end: 20180629

REACTIONS (1)
  - Pneumonitis [Not Recovered/Not Resolved]

NARRATIVE: CASE EVENT DATE: 20180629
